FAERS Safety Report 20061883 (Version 1)
Quarter: 2021Q4

REPORT INFORMATION
  Report Type: Spontaneous
  Country: US (occurrence: US)
  Receive Date: 20211112
  Receipt Date: 20211112
  Transmission Date: 20220304
  Serious: Yes (Death, Other)
  Sender: FDA-Public Use
  Company Number: US-BAUSCH-BL-2021-037040

PATIENT
  Sex: Female

DRUGS (1)
  1. XIFAXAN [Suspect]
     Active Substance: RIFAXIMIN
     Indication: Liver disorder
     Dosage: TAKING XIFAXAN OVER THE LAST TWO YEARS
     Route: 065

REACTIONS (3)
  - Sepsis [Fatal]
  - Hepatic cancer [Unknown]
  - Liver disorder [Unknown]
